FAERS Safety Report 7289273-8 (Version None)
Quarter: 2011Q1

REPORT INFORMATION
  Report Type: 
  Country: None (occurrence: None)
  Receive Date: 20110211
  Receipt Date: 20080813
  Transmission Date: 20110831
  Serious: Yes (Death, Life-Threatening, Hospitalization)
  Sender: FDA-Public Use
  Company Number: US-BAYER-200815623NA

PATIENT
  Sex: Male

DRUGS (1)
  1. TRASYLOL [Suspect]
     Indication: CORONARY ARTERY BYPASS
     Dates: start: 20010101

REACTIONS (6)
  - POSTOPERATIVE RENAL FAILURE [None]
  - DEPRESSION [None]
  - INJURY [None]
  - NERVOUSNESS [None]
  - EMOTIONAL DISTRESS [None]
  - FEAR OF DEATH [None]
